FAERS Safety Report 9683540 (Version 2)
Quarter: 2013Q4

REPORT INFORMATION
  Report Type: Report from Study
  Country: JP (occurrence: JP)
  Receive Date: 20131112
  Receipt Date: 20131112
  Transmission Date: 20140711
  Serious: Yes (Hospitalization, Other)
  Sender: FDA-Public Use
  Company Number: JP-TAKEDA-2013TJP001986

PATIENT
  Age: 75 Year
  Sex: Female
  Weight: 58 kg

DRUGS (9)
  1. LANSOPRAZOLE [Suspect]
     Indication: PROPHYLAXIS AGAINST GASTROINTESTINAL ULCER
     Dosage: 15 MG, QD
     Route: 048
     Dates: start: 20120920
  2. BAYASPIRIN [Concomitant]
     Indication: THROMBOSIS PROPHYLAXIS
     Dosage: 100 MG, 1 DAYS
     Route: 048
     Dates: end: 20121129
  3. CRESTOR [Concomitant]
     Dosage: 2.5 MG, 1 DAYS
     Route: 048
  4. NU-LOTAN [Concomitant]
     Dosage: 25 MG, 1 DAYS
     Route: 048
  5. GASMOTIN [Concomitant]
     Dosage: 15 MG, 1 DAYS
     Route: 048
  6. URSO                               /00465701/ [Concomitant]
     Dosage: 200 MG, 1 DAYS
     Route: 048
  7. PRONON [Concomitant]
     Indication: ATRIAL FIBRILLATION
     Dosage: 300 MG, 1 DAYS
     Route: 048
     Dates: end: 20121217
  8. MAGLAX [Concomitant]
     Indication: CONSTIPATION
     Dosage: 500 MG, 1 DAYS
     Route: 048
     Dates: start: 20121115
  9. WARFARIN [Concomitant]
     Indication: THROMBOSIS PROPHYLAXIS
     Dosage: 2.25-2.75 MG, 1 DAYS
     Route: 048
     Dates: start: 20121217

REACTIONS (1)
  - Lung neoplasm malignant [Recovered/Resolved]
